FAERS Safety Report 18167550 (Version 1)
Quarter: 2020Q3

REPORT INFORMATION
  Report Type: Spontaneous
  Country: GB (occurrence: GB)
  Receive Date: 20200818
  Receipt Date: 20200818
  Transmission Date: 20201103
  Serious: Yes (Other)
  Sender: FDA-Public Use
  Company Number: GB-ASCEND THERAPEUTICS US, LLC-2088753

PATIENT
  Age: 52 Year
  Sex: Female
  Weight: 84 kg

DRUGS (3)
  1. OESTROGEL (ESTRADIOL)?INDICATION FOR USE: HRT [Suspect]
     Active Substance: ESTRADIOL
     Route: 065
     Dates: start: 20200701, end: 20200723
  2. ESTROGEL [Suspect]
     Active Substance: ESTRADIOL
  3. ESTROGEL [Suspect]
     Active Substance: ESTRADIOL
     Indication: HORMONE REPLACEMENT THERAPY
     Route: 065
     Dates: start: 20200701, end: 20200723

REACTIONS (3)
  - Crying [Unknown]
  - Menstrual disorder [Unknown]
  - Drug ineffective [Unknown]
